FAERS Safety Report 4554567-3 (Version None)
Quarter: 2005Q1

REPORT INFORMATION
  Report Type: 
  Country: None (occurrence: None)
  Receive Date: 20050118
  Receipt Date: 20041222
  Transmission Date: 20050727
  Serious: Yes (Other)
  Sender: FDA-Public Use
  Company Number: PHBS2004JP17257

PATIENT
  Age: 56 Year
  Sex: Male

DRUGS (1)
  1. CYCLOSPORINE [Suspect]
     Indication: CORD BLOOD TRANSPLANT THERAPY
     Dosage: UNK, UNK
     Route: 065
     Dates: start: 20030812

REACTIONS (6)
  - ADENOVIRAL HAEMORRHAGIC CYSTITIS [None]
  - DEPRESSED LEVEL OF CONSCIOUSNESS [None]
  - ENCEPHALITIS HERPES [None]
  - PYREXIA [None]
  - RETINITIS VIRAL [None]
  - VISUAL ACUITY REDUCED [None]
